FAERS Safety Report 24468653 (Version 1)
Quarter: 2024Q4

REPORT INFORMATION
  Report Type: Spontaneous
  Country: CH (occurrence: CH)
  Receive Date: 20241018
  Receipt Date: 20241018
  Transmission Date: 20250114
  Serious: Yes (Life-Threatening, Hospitalization, Other)
  Sender: SANDOZ
  Company Number: None

PATIENT
  Age: 81 Year
  Sex: Male

DRUGS (24)
  1. CIPROFLOXACIN [Suspect]
     Active Substance: CIPROFLOXACIN
     Indication: Product used for unknown indication
     Dosage: 500 MG N/A DOSE EVERY 12 HOUR
     Route: 048
     Dates: start: 20240610, end: 20240615
  2. CLINDAMYCIN [Suspect]
     Active Substance: CLINDAMYCIN
     Indication: Product used for unknown indication
     Dosage: 600 MG N/A DOSE EVERY 8 HOUR
     Route: 048
     Dates: start: 20240610, end: 20240615
  3. DIFLUCAN [Suspect]
     Active Substance: FLUCONAZOLE
     Indication: Product used for unknown indication
     Dosage: 200 MG N/A DOSE EVERY 1 DAY
     Route: 040
     Dates: start: 20240516, end: 20240607
  4. ESOMEPRAZOLE [Suspect]
     Active Substance: ESOMEPRAZOLE
     Indication: Product used for unknown indication
     Dosage: 40 MG N/A DOSE EVERY 12 HOUR
     Route: 048
     Dates: start: 20240524, end: 20240615
  5. NOVALGIN (METAMIZOLE SODIUM) [Suspect]
     Active Substance: METAMIZOLE SODIUM
     Indication: Product used for unknown indication
     Dosage: 1 G N/A DOSE EVERY 1 DAY
     Route: 065
     Dates: start: 20240613, end: 20240614
  6. NOVALGIN (METAMIZOLE SODIUM) [Suspect]
     Active Substance: METAMIZOLE SODIUM
     Dosage: 1 G N/A DOSE EVERY N/A TOTAL
     Route: 065
     Dates: start: 20240522, end: 20240522
  7. PIPERACILLIN SODIUM\TAZOBACTAM SODIUM [Suspect]
     Active Substance: PIPERACILLIN SODIUM\TAZOBACTAM SODIUM
     Dosage: 4.5 G N/A DOSE EVERY 12 HOUR
     Route: 040
     Dates: start: 20240615, end: 20240616
  8. PIPERACILLIN SODIUM\TAZOBACTAM SODIUM [Suspect]
     Active Substance: PIPERACILLIN SODIUM\TAZOBACTAM SODIUM
     Indication: Product used for unknown indication
     Dosage: 4.5 G N/A DOSE EVERY 8 HOUR
     Route: 040
     Dates: start: 20240511, end: 20240610
  9. AMOXICILLIN\CLAVULANATE POTASSIUM [Concomitant]
     Active Substance: AMOXICILLIN\CLAVULANATE POTASSIUM
     Indication: Product used for unknown indication
     Dosage: 500 MG AMOXICILLIN, 125 MG CLAVULANIC ACID
     Route: 065
     Dates: start: 20240514
  10. AMOXICILLIN\CLAVULANATE POTASSIUM [Concomitant]
     Active Substance: AMOXICILLIN\CLAVULANATE POTASSIUM
     Dosage: 625 MG N/A DOSE EVERY N/A N/A
     Route: 065
     Dates: end: 20240511
  11. ALBUTEROL SULFATE\IPRATROPIUM BROMIDE [Concomitant]
     Active Substance: ALBUTEROL SULFATE\IPRATROPIUM BROMIDE
     Indication: Product used for unknown indication
     Dosage: 1 CELLS N/A DOSE EVERY 8 HOUR
     Route: 055
     Dates: start: 20240510
  12. EXFORGE [Concomitant]
     Active Substance: AMLODIPINE BESYLATE\VALSARTAN
     Indication: Product used for unknown indication
     Dosage: 160 MG VALSARTAN, 10 MG AMLODIPINE
     Route: 065
     Dates: end: 20240525
  13. FLUIMUCIL [Concomitant]
     Active Substance: ACETYLCYSTEINE
     Indication: Product used for unknown indication
     Dosage: 200 MG N/A DOSE EVERY 1 DAY
     Route: 048
     Dates: start: 20240510
  14. FRAGMIN [Concomitant]
     Active Substance: DALTEPARIN SODIUM
     Indication: Product used for unknown indication
     Dosage: 5000 CELLS N/A DOSE EVERY 1 DAY
     Route: 058
     Dates: start: 20240531
  15. LASIX [Concomitant]
     Active Substance: FUROSEMIDE
     Indication: Product used for unknown indication
     Dosage: 20 MG N/A DOSE EVERY 1 DAY
     Route: 040
     Dates: start: 20240525, end: 20240528
  16. PANTOPRAZOLE [Concomitant]
     Active Substance: PANTOPRAZOLE
     Indication: Product used for unknown indication
     Dosage: 40 MG N/A DOSE EVERY 1 DAY
     Route: 048
     Dates: start: 20240620
  17. PANTOPRAZOLE [Concomitant]
     Active Substance: PANTOPRAZOLE
     Dosage: 40 MG N/A DOSE EVERY 1 DAY
     Route: 048
     Dates: start: 20240513, end: 20240515
  18. ACETAMINOPHEN [Concomitant]
     Active Substance: ACETAMINOPHEN
     Indication: Product used for unknown indication
     Dosage: 1 G N/A DOSE EVERY N/A AS NECESSARY
     Route: 065
  19. MINERAL OIL\PHENOLPHTHALEIN [Concomitant]
     Active Substance: MINERAL OIL\PHENOLPHTHALEIN
     Indication: Product used for unknown indication
     Dosage: 20 ML N/A DOSE EVERY 1 DAY
     Route: 048
     Dates: start: 20240529, end: 20240607
  20. PHOSCAP [Concomitant]
     Indication: Product used for unknown indication
     Dosage: 288 MG PHOSPHATE PER TABLET
     Route: 048
     Dates: start: 20240603
  21. PRADIF T [Concomitant]
     Active Substance: TAMSULOSIN HYDROCHLORIDE
     Indication: Product used for unknown indication
     Dosage: 0.4 MG N/A DOSE EVERY 1 DAY
     Route: 048
     Dates: start: 20240607
  22. Supradyn pro energy complex [Concomitant]
     Indication: Product used for unknown indication
     Dosage: 1 CELLS N/A DOSE EVERY 1 DAY
     Route: 048
     Dates: start: 20240529, end: 20240601
  23. TORSEMIDE [Concomitant]
     Active Substance: TORSEMIDE
     Indication: Product used for unknown indication
     Dosage: 5 MG N/A DOSE EVERY 1 DAY
     Route: 048
     Dates: start: 20240521, end: 20240525
  24. CHOLECALCIFEROL [Concomitant]
     Active Substance: CHOLECALCIFEROL
     Indication: Product used for unknown indication
     Dosage: 4000 IU CHOLECALCIFEROL PER ML
     Route: 048
     Dates: start: 20240523

REACTIONS (1)
  - Drug reaction with eosinophilia and systemic symptoms [Recovering/Resolving]

NARRATIVE: CASE EVENT DATE: 20240614
